FAERS Safety Report 8881010 (Version 2)
Quarter: 2012Q4

REPORT INFORMATION
  Report Type: 
  Country: BR (occurrence: BR)
  Receive Date: 20121101
  Receipt Date: 20121226
  Transmission Date: 20130627
  Serious: Yes (Hospitalization)
  Sender: FDA-Public Use
  Company Number: BR-AMGEN-BRASP2012069661

PATIENT
  Sex: Female

DRUGS (6)
  1. PROLIA [Suspect]
     Indication: OSTEOPOROSIS
     Dosage: 60 mg/ml, UNK
     Route: 058
     Dates: start: 201210
  2. HUMIRA [Concomitant]
     Indication: RHEUMATOID ARTHRITIS
     Dosage: UNK UNK, UNK
     Dates: start: 2009
  3. HUMIRA [Concomitant]
     Dates: start: 2009
  4. TRYPTANOL                          /00002202/ [Concomitant]
     Indication: FIBROMYALGIA
     Dosage: UNK UNK, UNK
     Dates: start: 2009
  5. COLECALCIFEROL [Concomitant]
     Indication: OSTEOPOROSIS
  6. DEPURA [Concomitant]
     Indication: OSTEOPOROSIS

REACTIONS (2)
  - Transient ischaemic attack [Recovered/Resolved]
  - Oral disorder [Recovered/Resolved]
